FAERS Safety Report 14882980 (Version 1)
Quarter: 2018Q2

REPORT INFORMATION
  Report Type: Spontaneous
  Country: SG (occurrence: SG)
  Receive Date: 20180511
  Receipt Date: 20180511
  Transmission Date: 20180711
  Serious: Yes (Other)
  Sender: FDA-Public Use
  Company Number: SG-TELIGENT, INC-IGIL20180262

PATIENT
  Age: 78 Year
  Sex: Male

DRUGS (4)
  1. VANCOMYCIN [Concomitant]
     Active Substance: VANCOMYCIN
     Indication: DEVICE RELATED SEPSIS
     Dosage: 2 G DAILY WITH 1 G TOP UP AFTER EACH DIALYSIS
     Route: 065
  2. VANCOMYCIN [Concomitant]
     Active Substance: VANCOMYCIN
     Indication: PYREXIA
  3. CEFTAZIDIME. [Suspect]
     Active Substance: CEFTAZIDIME
     Indication: PYREXIA
  4. CEFTAZIDIME. [Suspect]
     Active Substance: CEFTAZIDIME
     Indication: DEVICE RELATED SEPSIS
     Dosage: 2 G DAILY WITH 1 G TOP UP AFTER EACH DIALYSIS
     Route: 065

REACTIONS (5)
  - Ataxia [Recovered/Resolved]
  - Hemiparesis [Recovered/Resolved]
  - Myoclonus [Recovered/Resolved]
  - Infection parasitic [Recovered/Resolved]
  - Neurotoxicity [Recovered/Resolved]
